FAERS Safety Report 14015771 (Version 7)
Quarter: 2018Q1

REPORT INFORMATION
  Report Type: Report from Study
  Country: BR (occurrence: BR)
  Receive Date: 20170927
  Receipt Date: 20180312
  Transmission Date: 20180508
  Serious: Yes (Hospitalization)
  Sender: FDA-Public Use
  Company Number: BR-JNJFOC-20170816637

PATIENT
  Age: 53 Year
  Sex: Male

DRUGS (11)
  1. ALDACTONE [Concomitant]
     Active Substance: SPIRONOLACTONE
     Route: 065
  2. EFFIENT [Concomitant]
     Active Substance: PRASUGREL HYDROCHLORIDE
     Route: 065
  3. STELARA [Suspect]
     Active Substance: USTEKINUMAB
     Indication: PSORIASIS
     Route: 058
     Dates: start: 20170620
  4. NAPRIX [Concomitant]
     Active Substance: RAMIPRIL
     Route: 065
  5. ASPIRINA PREVENT [Concomitant]
     Active Substance: ASPIRIN
     Route: 065
  6. STELARA [Suspect]
     Active Substance: USTEKINUMAB
     Indication: PSORIASIS
     Route: 058
     Dates: start: 20171118
  7. CLONAZEPAM. [Concomitant]
     Active Substance: CLONAZEPAM
     Route: 065
  8. ROSUCOR [Concomitant]
     Active Substance: ROSUVASTATIN CALCIUM
     Route: 065
  9. SELOZOK [Concomitant]
     Active Substance: METOPROLOL SUCCINATE
     Route: 065
  10. GLIFAGE [Concomitant]
     Active Substance: METFORMIN HYDROCHLORIDE
     Route: 065
  11. STELARA [Suspect]
     Active Substance: USTEKINUMAB
     Indication: PSORIASIS
     Route: 058
     Dates: start: 20170720

REACTIONS (11)
  - Product use issue [Unknown]
  - Dyspnoea [Unknown]
  - Spinal pain [Not Recovered/Not Resolved]
  - Off label use [Unknown]
  - Drug dose omission [Unknown]
  - Syringe issue [Unknown]
  - Psoriasis [Not Recovered/Not Resolved]
  - Tooth extraction [Unknown]
  - Dental implantation [Unknown]
  - Nephrolithiasis [Recovering/Resolving]
  - Urinary tract obstruction [Recovering/Resolving]

NARRATIVE: CASE EVENT DATE: 2017
